FAERS Safety Report 15684299 (Version 1)
Quarter: 2018Q4

REPORT INFORMATION
  Report Type: Spontaneous
  Country: FR (occurrence: FR)
  Receive Date: 20181204
  Receipt Date: 20181204
  Transmission Date: 20190205
  Serious: Yes (Other)
  Sender: FDA-Public Use
  Company Number: FR-TAKEDA-2018TUS032665

PATIENT
  Age: 85 Year
  Sex: Male

DRUGS (3)
  1. ADENURIC [Suspect]
     Active Substance: FEBUXOSTAT
     Indication: HYPERURICAEMIA
     Dosage: 80 MG, QOD
     Route: 048
     Dates: start: 20180605, end: 20181102
  2. APROVEL [Concomitant]
     Active Substance: IRBESARTAN
     Indication: HYPERTENSION
     Dosage: 150 MG, QD
     Route: 048
     Dates: start: 200807
  3. SEROPRAM (CITALOPRAM HYDROBROMIDE) [Concomitant]
     Active Substance: CITALOPRAM HYDROBROMIDE
     Indication: DEPRESSION
     Dosage: 20 MG, QD
     Route: 048
     Dates: start: 201702

REACTIONS (6)
  - Inappropriate schedule of product administration [Recovered/Resolved]
  - Scab [Recovering/Resolving]
  - Ulcer [Recovering/Resolving]
  - Purulent discharge [Recovering/Resolving]
  - Rash [Recovering/Resolving]
  - Superinfection [Recovering/Resolving]

NARRATIVE: CASE EVENT DATE: 20180605
